FAERS Safety Report 9973932 (Version 1)
Quarter: 2014Q1

REPORT INFORMATION
  Report Type: Report from Study
  Country: US (occurrence: US)
  Receive Date: 20140306
  Receipt Date: 20140306
  Transmission Date: 20141002
  Serious: No
  Sender: FDA-Public Use
  Company Number: US-ABBVIE-13P-163-1154937-00

PATIENT
  Age: 56 Year
  Sex: Male

DRUGS (1)
  1. HUMIRA [Suspect]
     Indication: RHEUMATOID ARTHRITIS
     Dates: start: 2012

REACTIONS (4)
  - Dyshidrotic eczema [Not Recovered/Not Resolved]
  - Rash generalised [Not Recovered/Not Resolved]
  - Dermatitis infected [Unknown]
  - Dyshidrotic eczema [Unknown]
